FAERS Safety Report 4845823-X (Version None)
Quarter: 2005Q4

REPORT INFORMATION
  Report Type: 
  Country: None (occurrence: None)
  Receive Date: 20051202
  Receipt Date: 20051202
  Transmission Date: 20060501
  Serious: Yes (Other)
  Sender: FDA-Public Use
  Company Number: None

PATIENT
  Sex: Female
  Weight: 65.318 kg

DRUGS (7)
  1. SULFAMETHOXAZOLE + TRIMETHOPRIM [Suspect]
     Indication: CYSTITIS
     Dosage: 1 TAB PO BID
     Route: 048
     Dates: start: 20051101, end: 20051109
  2. SULFAMETHOXAZOLE + TRIMETHOPRIM [Suspect]
     Indication: KIDNEY INFECTION
     Dosage: 1 TAB PO BID
     Route: 048
     Dates: start: 20051101, end: 20051109
  3. SULFAMETHOXAZOLE + TRIMETHOPRIM [Suspect]
     Indication: PROPHYLAXIS
     Dosage: 1 TAB PO BID
     Route: 048
     Dates: start: 20051101, end: 20051109
  4. NASACORT AQ [Concomitant]
  5. ZYRTEC-D 12 HOUR [Concomitant]
  6. SYNTHROID [Concomitant]
  7. PRENATAL MULTIVITAMIN [Concomitant]

REACTIONS (1)
  - ERYTHEMA MULTIFORME [None]
